FAERS Safety Report 6284622-1 (Version None)
Quarter: 2009Q3

REPORT INFORMATION
  Report Type: 
  Country: None (occurrence: None)
  Receive Date: 20090727
  Receipt Date: 20090706
  Transmission Date: 20100115
  Serious: No
  Sender: FDA-Public Use
  Company Number: US-ALEXION-A200900536

PATIENT
  Sex: Female

DRUGS (8)
  1. SOLIRIS [Suspect]
     Indication: PAROXYSMAL NOCTURNAL HAEMOGLOBINURIA
     Dosage: 600 MG, QW
     Route: 042
     Dates: start: 20070918
  2. SOLIRIS [Suspect]
     Dosage: 900 MG, Q2W
     Route: 042
     Dates: start: 20071016, end: 20090101
  3. SOLIRIS [Suspect]
     Dosage: 700 MG, Q2W
     Route: 042
     Dates: end: 20090201
  4. SOLIRIS [Suspect]
     Dosage: 900 MG, Q2W
     Route: 042
     Dates: start: 20090101
  5. LEXAPRO [Concomitant]
     Dosage: 10 MG, QD
     Route: 048
  6. MORPHINE SULFATE [Concomitant]
     Indication: PAIN
     Dosage: 30 MG, QD
     Route: 048
  7. ZOFRAN [Concomitant]
     Indication: NAUSEA
     Dosage: UNK
     Route: 048
  8. DIAZEPAM [Concomitant]
     Dosage: UNK
     Route: 048

REACTIONS (2)
  - IMPAIRED HEALING [None]
  - INCREASED TENDENCY TO BRUISE [None]
